FAERS Safety Report 7739813-7 (Version None)
Quarter: 2011Q3

REPORT INFORMATION
  Report Type: 
  Country: None (occurrence: None)
  Receive Date: 20110909
  Receipt Date: 20110829
  Transmission Date: 20111222
  Serious: Yes (Hospitalization, Other)
  Sender: FDA-Public Use
  Company Number: PHHY2011FR77431

PATIENT
  Sex: Female

DRUGS (11)
  1. FUROSEMIDE [Suspect]
     Dosage: 1 DF, DAILY
     Dates: start: 20110406
  2. ASPIRIN [Concomitant]
     Dosage: UNK
  3. VALSARTAN [Suspect]
     Dosage: 1 DF, DAILY
     Route: 048
     Dates: start: 20110404
  4. POTASSIUM CHLORIDE [Concomitant]
     Dosage: 6 DF, DAILY
  5. ACETAMINOPHEN [Concomitant]
  6. FORLAX [Concomitant]
     Dosage: UNK
  7. ORAMORPH SR [Concomitant]
     Dosage: UNK
  8. CALCIPARINE [Concomitant]
  9. FUROSEMIDE [Suspect]
     Dosage: 3 DF, DAILY
     Dates: start: 20110404
  10. BISOPROLOL FUMARATE [Suspect]
     Dosage: 1 DF, DAILY
     Dates: start: 20110404, end: 20110722
  11. HYZAAR [Concomitant]
     Dosage: UNK

REACTIONS (9)
  - HYPOKALAEMIA [None]
  - DERMATITIS PSORIASIFORM [None]
  - ECZEMA [None]
  - EOSINOPHILIA [None]
  - GUTTATE PSORIASIS [None]
  - ERYTHEMA [None]
  - RASH [None]
  - SKIN LESION [None]
  - SKIN REACTION [None]
